FAERS Safety Report 19261633 (Version 1)
Quarter: 2021Q2

REPORT INFORMATION
  Report Type: Report from Study
  Country: MX (occurrence: MX)
  Receive Date: 20210515
  Receipt Date: 20210515
  Transmission Date: 20210717
  Serious: Yes (Other)
  Sender: FDA-Public Use
  Company Number: NVSC2021MX106751

PATIENT
  Age: 68 Year
  Sex: Female
  Weight: 97 kg

DRUGS (1)
  1. EXFORGE HCT [Suspect]
     Active Substance: AMLODIPINE BESYLATE\HYDROCHLOROTHIAZIDE\VALSARTAN
     Indication: HYPERTENSION
     Dosage: 1 DF, QD (10/320/25)
     Route: 048
     Dates: start: 202101

REACTIONS (1)
  - Infarction [Unknown]

NARRATIVE: CASE EVENT DATE: 202104
